FAERS Safety Report 19266705 (Version 2)
Quarter: 2021Q3

REPORT INFORMATION
  Report Type: Spontaneous
  Country: US (occurrence: US)
  Receive Date: 20210518
  Receipt Date: 20210702
  Transmission Date: 20211014
  Serious: No
  Sender: FDA-Public Use
  Company Number: US-TOLMAR, INC.-21US026851

PATIENT

DRUGS (1)
  1. FENSOLVI [Suspect]
     Active Substance: LEUPROLIDE ACETATE
     Indication: PRECOCIOUS PUBERTY
     Dosage: UNK UNK, Q 6 MONTH
     Route: 065
     Dates: start: 202101

REACTIONS (1)
  - Drug ineffective [Not Recovered/Not Resolved]
